FAERS Safety Report 4647672-4 (Version None)
Quarter: 2005Q2

REPORT INFORMATION
  Report Type: 
  Country: None (occurrence: None)
  Receive Date: 20050427
  Receipt Date: 20050415
  Transmission Date: 20051028
  Serious: Yes (Life-Threatening)
  Sender: FDA-Public Use
  Company Number: 2005AP000348

PATIENT
  Age: 73 Year
  Sex: Male
  Weight: 81.6475 kg

DRUGS (8)
  1. OMEPRAZOLE [Suspect]
     Indication: DYSPEPSIA
     Dosage: 20 MG, QD; PO
     Route: 048
     Dates: start: 20050228, end: 20050330
  2. OMEPRAZOLE [Suspect]
     Indication: HIATUS HERNIA
     Dosage: 20 MG, QD; PO
     Route: 048
     Dates: start: 20050228, end: 20050330
  3. OMEPRAZOLE [Suspect]
     Indication: REFLUX OESOPHAGITIS
     Dosage: 20 MG, QD; PO
     Route: 048
     Dates: start: 20050228, end: 20050330
  4. CRESTOR [Concomitant]
  5. TENORMIN [Concomitant]
  6. AVAPRO [Concomitant]
  7. COENZYME Q10 [Concomitant]
  8. ASAPHEN [Concomitant]

REACTIONS (2)
  - BLOOD PRESSURE INCREASED [None]
  - THERAPEUTIC RESPONSE UNEXPECTED WITH DRUG SUBSTITUTION [None]
